FAERS Safety Report 8517044-0 (Version None)
Quarter: 2012Q3

REPORT INFORMATION
  Report Type: 
  Country: None (occurrence: None)
  Receive Date: 20120718
  Receipt Date: 20101123
  Transmission Date: 20120928
  Serious: Yes (Other)
  Sender: FDA-Public Use
  Company Number: US-BAYER-201047955GPV

PATIENT
  Age: 60 Year
  Sex: Male

DRUGS (12)
  1. AZITHROMYCIN [Suspect]
     Dosage: A SHORT COURSE
  2. VENLAFAXINE [Concomitant]
  3. BUDESONIDE [Concomitant]
  4. ST. JOHNS WORT [Concomitant]
  5. PREDNISOLONE [Suspect]
     Dosage: 1 MG PER KILOGRAM OF BODY WEIGHT, WITH A PLAN TO TAPER THE DOSE OVER THE COURSE OF A MONTH
  6. DIAZEPAM [Suspect]
  7. RED BLOOD CELLS [Concomitant]
     Indication: HYPOTENSION
  8. HYDRATION [Concomitant]
     Indication: ORTHOSTATIC HYPOTENSION
  9. TESTOSTERONE [Suspect]
     Route: 061
  10. OMEPRAZOLE [Suspect]
     Indication: GASTRITIS EROSIVE
  11. ASPIRIN [Suspect]
  12. ATORVASTATIN [Concomitant]

REACTIONS (7)
  - URINARY TRACT INFLAMMATION [None]
  - GASTROINTESTINAL HAEMORRHAGE [None]
  - RENAL INJURY [None]
  - TUBULOINTERSTITIAL NEPHRITIS [None]
  - BLOOD UREA INCREASED [None]
  - BLOOD CREATININE INCREASED [None]
  - MELAENA [None]
